FAERS Safety Report 24231429 (Version 3)
Quarter: 2024Q3

REPORT INFORMATION
  Report Type: Report from Study
  Country: CA (occurrence: CA)
  Receive Date: 20240821
  Receipt Date: 20240918
  Transmission Date: 20241017
  Serious: Yes (Other)
  Sender: JOHNSON AND JOHNSON
  Company Number: CA-JNJFOC-20240801924

PATIENT
  Age: 16 Year
  Sex: Male
  Weight: 44 kg

DRUGS (8)
  1. REMICADE [Suspect]
     Active Substance: INFLIXIMAB
     Indication: Crohn^s disease
     Dosage: ALSO REPORTED 08-AUG-2024, 09-AUG-2024, AND 28-AUG-2024
     Route: 041
     Dates: start: 20240626
  2. REMICADE [Suspect]
     Active Substance: INFLIXIMAB
     Route: 041
  3. REMICADE [Suspect]
     Active Substance: INFLIXIMAB
     Dosage: REMICADE SCRIPT CHANGING TO 400MG STAT FOLLOWED BY 400MG EVERY 4 WEEK MAINTENANCE
     Route: 041
  4. IRON [Concomitant]
     Active Substance: IRON
  5. DISODIUM FUMARATE [Concomitant]
     Active Substance: DISODIUM FUMARATE
  6. IRON [Concomitant]
     Active Substance: IRON
  7. LANSOPRAZOLE [Concomitant]
     Active Substance: LANSOPRAZOLE
  8. PREDNISONE [Concomitant]
     Active Substance: PREDNISONE

REACTIONS (5)
  - Haemorrhage [Recovering/Resolving]
  - Ileal ulcer [Unknown]
  - Inflammatory marker increased [Unknown]
  - Therapeutic response delayed [Unknown]
  - Off label use [Unknown]
